FAERS Safety Report 6271810-3 (Version None)
Quarter: 2009Q3

REPORT INFORMATION
  Report Type: 
  Country: None (occurrence: None)
  Receive Date: 20090717
  Receipt Date: 20090708
  Transmission Date: 20100115
  Serious: Yes (Other)
  Sender: FDA-Public Use
  Company Number: FR-JNJFOC-20090703221

PATIENT
  Age: 58 Year
  Sex: Male

DRUGS (9)
  1. REMICADE [Suspect]
     Route: 042
  2. REMICADE [Suspect]
     Indication: COLITIS
     Route: 042
  3. COLOFOAM [Concomitant]
  4. OROCAL D3 [Concomitant]
  5. IXPRIM [Concomitant]
  6. RIVOTRIL [Concomitant]
  7. ARESTAL [Concomitant]
  8. FIVASA [Concomitant]
  9. SOLU-MEDROL [Concomitant]
     Indication: PREMEDICATION

REACTIONS (3)
  - ANGIOEDEMA [None]
  - TYPE IV HYPERSENSITIVITY REACTION [None]
  - URTICARIA [None]
